FAERS Safety Report 7022933-2 (Version None)
Quarter: 2010Q3

REPORT INFORMATION
  Report Type: 
  Country: None (occurrence: None)
  Receive Date: 20100930
  Receipt Date: 20100920
  Transmission Date: 20110219
  Serious: Yes (Life-Threatening, Other)
  Sender: FDA-Public Use
  Company Number: US-NAPPMUNDI-USA-2010-0047159

PATIENT
  Sex: Male

DRUGS (2)
  1. OXYCONTIN [Suspect]
     Indication: PRODUCT USED FOR UNKNOWN INDICATION
     Dosage: 160 MG, TID
     Dates: start: 20100916, end: 20100901
  2. OXYCONTIN [Suspect]
     Dosage: UNK

REACTIONS (11)
  - ABDOMINAL DISTENSION [None]
  - COMA [None]
  - DRUG INEFFECTIVE [None]
  - FATIGUE [None]
  - INADEQUATE ANALGESIA [None]
  - MALAISE [None]
  - MIGRAINE [None]
  - NERVE INJURY [None]
  - PRODUCT QUALITY ISSUE [None]
  - SHOCK [None]
  - UNEVALUABLE EVENT [None]
